FAERS Safety Report 5735122-6 (Version None)
Quarter: 2008Q2

REPORT INFORMATION
  Report Type: 
  Country: None (occurrence: None)
  Receive Date: 20080512
  Receipt Date: 20080429
  Transmission Date: 20081010
  Serious: No
  Sender: FDA-Public Use
  Company Number: GB-PFIZER INC-2008037051

PATIENT
  Age: 59 Year
  Sex: Male

DRUGS (3)
  1. PHENYTOIN [Suspect]
     Indication: EPILEPSY
  2. OMEPRAZOLE [Suspect]
  3. VITAMIN B COMPLEX CAP [Concomitant]

REACTIONS (1)
  - NO ADVERSE EVENT [None]
